FAERS Safety Report 11865708 (Version 4)
Quarter: 2016Q1

REPORT INFORMATION
  Report Type: Spontaneous
  Country: JP (occurrence: JP)
  Receive Date: 20151223
  Receipt Date: 20160108
  Transmission Date: 20160526
  Serious: Yes (Death, Life-Threatening, Other)
  Sender: FDA-Public Use
  Company Number: JP-MEDTRONIC-1045832

PATIENT
  Age: 58 Year
  Sex: Male
  Weight: 47 kg

DRUGS (1)
  1. GABALON INTRATHECAL 0.05% [Suspect]
     Active Substance: BACLOFEN
     Indication: MULTIPLE SCLEROSIS
     Route: 037
     Dates: start: 20110121, end: 20151215

REACTIONS (9)
  - Oxygen saturation decreased [Fatal]
  - Sepsis [Fatal]
  - Cardio-respiratory arrest [Fatal]
  - Pyrexia [Fatal]
  - Colorectal cancer [Unknown]
  - Ventricular fibrillation [Fatal]
  - White blood cell count increased [Fatal]
  - Adverse drug reaction [Unknown]
  - Electrocardiogram abnormal [Fatal]

NARRATIVE: CASE EVENT DATE: 20140619
